FAERS Safety Report 7596911-9 (Version None)
Quarter: 2011Q3

REPORT INFORMATION
  Report Type: 
  Country: None (occurrence: None)
  Receive Date: 20110708
  Receipt Date: 20110706
  Transmission Date: 20111222
  Serious: Yes (Other)
  Sender: FDA-Public Use
  Company Number: IT-PFIZER INC-2011152384

PATIENT
  Age: 57 Year
  Sex: Male

DRUGS (4)
  1. BISOPROLOL FUMARATE [Concomitant]
     Dosage: 2.5 MG, UNK
     Route: 048
  2. ATORVASTATIN CALCIUM [Suspect]
     Indication: HYPERLIPIDAEMIA
     Dosage: 40 MG, 1X/DAY
     Route: 048
     Dates: start: 20110314, end: 20110503
  3. NORVASC [Concomitant]
     Dosage: 5 MG, UNK
     Route: 048
  4. MICARDIS [Concomitant]
     Dosage: 80 MG, UNK
     Route: 048

REACTIONS (1)
  - FIBROMYALGIA [None]
